FAERS Safety Report 8082147-4 (Version None)
Quarter: 2012Q1

REPORT INFORMATION
  Report Type: 
  Country: None (occurrence: None)
  Receive Date: 20120127
  Receipt Date: 20110118
  Transmission Date: 20120608
  Serious: No
  Sender: FDA-Public Use
  Company Number: US-ABBOTT-11P-163-0699910-00

PATIENT
  Sex: Female
  Weight: 38.136 kg

DRUGS (3)
  1. HUMIRA [Suspect]
     Indication: CROHN'S DISEASE
     Dates: start: 20100901
  2. PRILOSEC [Concomitant]
     Indication: CROHN'S DISEASE
  3. FLAGYL [Concomitant]
     Indication: CROHN'S DISEASE

REACTIONS (2)
  - PAIN IN EXTREMITY [None]
  - MUSCULOSKELETAL PAIN [None]
